FAERS Safety Report 18931379 (Version 1)
Quarter: 2021Q1

REPORT INFORMATION
  Report Type: Not Available
  Country: US (occurrence: US)
  Receive Date: 20210224
  Receipt Date: 20210224
  Transmission Date: 20210420
  Serious: No
  Sender: FDA-Public Use
  Company Number: US-NEUROCRINE BIOSCIENCES INC.-2021NBI00758

PATIENT
  Age: 33 Year
  Sex: Male

DRUGS (2)
  1. INGREZZA [Suspect]
     Active Substance: VALBENAZINE
     Indication: MOVEMENT DISORDER
     Route: 048
  2. INGREZZA [Suspect]
     Active Substance: VALBENAZINE
     Indication: EXTRAPYRAMIDAL DISORDER
     Route: 048

REACTIONS (3)
  - Middle insomnia [Unknown]
  - Off label use [Unknown]
  - Fatigue [Unknown]
